FAERS Safety Report 10602100 (Version 1)
Quarter: 2014Q4

REPORT INFORMATION
  Report Type: Spontaneous
  Country: GB (occurrence: GB)
  Receive Date: 20141124
  Receipt Date: 20141124
  Transmission Date: 20150529
  Serious: Yes (Hospitalization)
  Sender: FDA-Public Use
  Company Number: GB-BRISTOL-MYERS SQUIBB COMPANY-21594536

PATIENT
  Age: 36 Year
  Sex: Female
  Weight: 59.7 kg

DRUGS (3)
  1. IFOSFAMIDE. [Suspect]
     Active Substance: IFOSFAMIDE
     Indication: SOFT TISSUE SARCOMA
     Route: 042
     Dates: start: 20141010
  2. MESNA. [Suspect]
     Active Substance: MESNA
     Indication: SOFT TISSUE SARCOMA
     Route: 042
  3. ETOPOSIDE. [Suspect]
     Active Substance: ETOPOSIDE
     Indication: SOFT TISSUE SARCOMA
     Route: 042

REACTIONS (3)
  - Neutropenic sepsis [Unknown]
  - Off label use [Unknown]
  - Anaemia [Unknown]

NARRATIVE: CASE EVENT DATE: 20141018
